FAERS Safety Report 23973868 (Version 1)
Quarter: 2024Q2

REPORT INFORMATION
  Report Type: Spontaneous
  Country: US (occurrence: US)
  Receive Date: 20240613
  Receipt Date: 20240613
  Transmission Date: 20240716
  Serious: No
  Sender: FDA-Public Use
  Company Number: US RIGEL Pharmaceuticals, INC - 2023FOS000328

PATIENT
  Sex: Male
  Weight: 107.94 kg

DRUGS (2)
  1. TAVALISSE [Suspect]
     Active Substance: FOSTAMATINIB
     Indication: Immune thrombocytopenia
     Dosage: 150 MG, BID
     Route: 048
     Dates: start: 20230329
  2. TAVALISSE [Suspect]
     Active Substance: FOSTAMATINIB
     Indication: Immunodeficiency

REACTIONS (5)
  - Platelet count decreased [Recovering/Resolving]
  - Contusion [Unknown]
  - Sleep disorder [Unknown]
  - Product dose omission issue [Unknown]
  - Diarrhoea [Unknown]

NARRATIVE: CASE EVENT DATE: 20230101
